FAERS Safety Report 21572822 (Version 2)
Quarter: 2022Q4

REPORT INFORMATION
  Report Type: Report from Study
  Country: BE (occurrence: BE)
  Receive Date: 20221109
  Receipt Date: 20221215
  Transmission Date: 20230113
  Serious: Yes (Hospitalization, Other)
  Sender: FDA-Public Use
  Company Number: BE-CELGENE-BEL-20210906547

PATIENT
  Age: 62 Year
  Sex: Female
  Weight: 97.5 kg

DRUGS (12)
  1. POMALIDOMIDE [Suspect]
     Active Substance: POMALIDOMIDE
     Indication: Plasma cell myeloma refractory
     Dosage: 4 MILLIGRAM
     Route: 048
     Dates: start: 20201218, end: 20210127
  2. DEXAMETHASONE [Suspect]
     Active Substance: DEXAMETHASONE
     Indication: Plasma cell myeloma refractory
     Dosage: 40 MILLIGRAM
     Route: 048
     Dates: start: 20201218, end: 20210122
  3. DARATUMUMAB [Suspect]
     Active Substance: DARATUMUMAB
     Indication: Plasma cell myeloma refractory
     Dosage: 1800 MILLIGRAM
     Route: 058
     Dates: start: 20201218, end: 20210122
  4. Befact [Concomitant]
     Indication: Post herpetic neuralgia
     Dosage: 1 DOSAGE FORMS
     Route: 048
     Dates: start: 20201127
  5. VITAMIN D3 [Concomitant]
     Active Substance: CHOLECALCIFEROL
     Indication: Immune enhancement therapy
     Dosage: 800 IU (INTERNATIONAL UNIT)
     Route: 048
     Dates: start: 202011
  6. PRIMROSE [Concomitant]
     Indication: Infection prophylaxis
     Dosage: 4 DOSAGE FORMS
     Route: 048
     Dates: start: 202011
  7. LIDOCAINE [Concomitant]
     Active Substance: LIDOCAINE
     Indication: Post herpetic neuralgia
     Dosage: FREQUENCY TEXT: AS NEEDED
     Route: 061
     Dates: start: 20201211
  8. ASPIRIN [Concomitant]
     Active Substance: ASPIRIN
     Indication: Thrombosis prophylaxis
     Dosage: 80 MILLIGRAM
     Route: 048
     Dates: start: 20201211
  9. PANTOPRAZOLE [Concomitant]
     Active Substance: PANTOPRAZOLE
     Indication: Gastrointestinal disorder prophylaxis
     Dosage: 20 MILLIGRAM
     Route: 048
     Dates: start: 20201211
  10. MOMETASONE FUROATE [Concomitant]
     Active Substance: MOMETASONE FUROATE
     Indication: Rash
     Dosage: FREQUENCY TEXT: NOT PROVIDED
     Dates: start: 20201221
  11. MOMETASONE FUROATE [Concomitant]
     Active Substance: MOMETASONE FUROATE
     Indication: Drug intolerance
  12. ACYCLOVIR [Concomitant]
     Active Substance: ACYCLOVIR
     Indication: Herpes zoster
     Route: 048
     Dates: start: 20201127

REACTIONS (1)
  - Gastroenteritis Escherichia coli [Recovered/Resolved]

NARRATIVE: CASE EVENT DATE: 20210127
